FAERS Safety Report 10058617 (Version 2)
Quarter: 2014Q2

REPORT INFORMATION
  Report Type: Spontaneous
  Country: DE (occurrence: DE)
  Receive Date: 20140404
  Receipt Date: 20140519
  Transmission Date: 20141212
  Serious: Yes (Hospitalization, Other)
  Sender: FDA-Public Use
  Company Number: DE-JNJFOC-20140400475

PATIENT
  Age: 53 Year
  Sex: Male

DRUGS (12)
  1. XARELTO [Suspect]
     Indication: CEREBROVASCULAR ACCIDENT PROPHYLAXIS
     Route: 048
     Dates: start: 20130917, end: 20130924
  2. XARELTO [Suspect]
     Indication: CEREBROVASCULAR ACCIDENT PROPHYLAXIS
     Route: 048
  3. XARELTO [Suspect]
     Indication: CEREBROVASCULAR ACCIDENT PROPHYLAXIS
     Route: 048
     Dates: start: 20130918
  4. XARELTO [Suspect]
     Indication: ATRIAL FIBRILLATION
     Route: 048
     Dates: start: 20130918
  5. XARELTO [Suspect]
     Indication: ATRIAL FIBRILLATION
     Route: 048
  6. XARELTO [Suspect]
     Indication: ATRIAL FIBRILLATION
     Route: 048
     Dates: start: 20130917, end: 20130924
  7. NEBIVOLOL [Concomitant]
     Route: 065
  8. TAMSULOSIN [Concomitant]
     Route: 065
  9. INDOMETACIN [Concomitant]
     Route: 065
  10. PANTOZOL [Concomitant]
     Route: 065
  11. UNACID [Concomitant]
     Route: 065
  12. VALSARTAN [Concomitant]
     Route: 065

REACTIONS (4)
  - Thrombosis [Recovered/Resolved]
  - Abdominal wall haemorrhage [Unknown]
  - Peritoneal haemorrhage [Recovered/Resolved]
  - Anaemia [Recovered/Resolved]
